FAERS Safety Report 8600429-1 (Version None)
Quarter: 2012Q3

REPORT INFORMATION
  Report Type: 
  Country: None (occurrence: None)
  Receive Date: 20120817
  Receipt Date: 20120804
  Transmission Date: 20120928
  Serious: Yes (Hospitalization)
  Sender: FDA-Public Use
  Company Number: AT-PAR PHARMACEUTICAL, INC-2012SCPR004556

PATIENT

DRUGS (3)
  1. VENLAFAXINE HYDROCHOLRIDE [Interacting]
     Indication: PRODUCT USED FOR UNKNOWN INDICATION
     Dosage: 300 MG, UNKNOWN
     Route: 065
  2. FLUOXETINE HCL [Suspect]
     Indication: PRODUCT USED FOR UNKNOWN INDICATION
     Dosage: 60 MG, UNKNOWN
     Route: 065
  3. ARIPIPRAZOLE [Concomitant]
     Indication: PRODUCT USED FOR UNKNOWN INDICATION
     Dosage: 10 MG, UNKNOWN
     Route: 065

REACTIONS (3)
  - DRUG LEVEL ABOVE THERAPEUTIC [None]
  - SEROTONIN SYNDROME [None]
  - DRUG INTERACTION [None]
